FAERS Safety Report 18329739 (Version 1)
Quarter: 2020Q3

REPORT INFORMATION
  Report Type: Spontaneous
  Country: BR (occurrence: BR)
  Receive Date: 20200930
  Receipt Date: 20200930
  Transmission Date: 20201103
  Serious: Yes (Other)
  Sender: FDA-Public Use
  Company Number: BR-PFIZER INC-2020376603

PATIENT
  Age: 29 Year
  Sex: Male

DRUGS (1)
  1. SUTENT [Suspect]
     Active Substance: SUNITINIB MALATE
     Dosage: CYCLIC, USE FOR 14 DAYS AND PAUSED 7 DAYS
     Dates: end: 202008

REACTIONS (1)
  - Ascites [Not Recovered/Not Resolved]
